FAERS Safety Report 4468324-X (Version None)
Quarter: 2004Q4

REPORT INFORMATION
  Report Type: 
  Country: None (occurrence: None)
  Receive Date: 20041007
  Receipt Date: 20040927
  Transmission Date: 20050328
  Serious: Yes (Hospitalization)
  Sender: FDA-Public Use
  Company Number: CN-ROCHE-381725

PATIENT
  Age: 44 Year
  Sex: Male
  Weight: 51 kg

DRUGS (1)
  1. PEGASYS [Suspect]
     Route: 058
     Dates: start: 20040401, end: 20040901

REACTIONS (1)
  - MUSCLE ATROPHY [None]
